FAERS Safety Report 17604086 (Version 1)
Quarter: 2020Q1

REPORT INFORMATION
  Report Type: Spontaneous
  Country: US (occurrence: US)
  Receive Date: 20200330
  Receipt Date: 20200330
  Transmission Date: 20200409
  Serious: No
  Sender: FDA-Public Use
  Company Number: None

PATIENT
  Age: 29 Year
  Sex: Female
  Weight: 72 kg

DRUGS (5)
  1. MAGNESIUM OXIDE 250MG [Concomitant]
  2. D AMPHETAMINE SALT COMBO 10MG [Concomitant]
  3. MELATONIN 1MG [Concomitant]
  4. AZITHROMYCIN 250MG TABLETS 6-PAK [Suspect]
     Active Substance: AZITHROMYCIN
     Indication: INFECTION
     Dosage: ?          QUANTITY:2 TABLET(S);?
     Route: 048
     Dates: start: 20200327, end: 20200329
  5. ALBUTERAL HFA INH 8L5MG [Concomitant]

REACTIONS (6)
  - Tachycardia [None]
  - Palpitations [None]
  - Chest pain [None]
  - Chest discomfort [None]
  - Dizziness [None]
  - Anxiety [None]

NARRATIVE: CASE EVENT DATE: 20200327
